FAERS Safety Report 22042308 (Version 4)
Quarter: 2024Q1

REPORT INFORMATION
  Report Type: Report from Study
  Country: US (occurrence: US)
  Receive Date: 20230227
  Receipt Date: 20240304
  Transmission Date: 20240410
  Serious: Yes (Other)
  Sender: FDA-Public Use
  Company Number: US-ABBVIE-4317075

PATIENT
  Age: 71 Year
  Sex: Female

DRUGS (3)
  1. SKYRIZI [Suspect]
     Active Substance: RISANKIZUMAB-RZAA
     Indication: Psoriatic arthropathy
     Dosage: STOP DATE 2022.
     Route: 058
     Dates: start: 20220923
  2. SKYRIZI [Suspect]
     Active Substance: RISANKIZUMAB-RZAA
     Route: 058
     Dates: start: 20221010
  3. SKYRIZI [Suspect]
     Active Substance: RISANKIZUMAB-RZAA
     Dosage: LAST ADMIN DATE : OCT 2022
     Route: 058
     Dates: start: 20221004

REACTIONS (9)
  - Knee arthroplasty [Unknown]
  - Rash [Recovered/Resolved]
  - Peripheral swelling [Recovering/Resolving]
  - Pruritus [Recovering/Resolving]
  - Knee operation [Unknown]
  - Papule [Recovering/Resolving]
  - Skin ulcer [Recovered/Resolved]
  - Arthralgia [Recovering/Resolving]
  - Knee arthroplasty [Unknown]

NARRATIVE: CASE EVENT DATE: 20220923
